FAERS Safety Report 12206883 (Version 3)
Quarter: 2016Q2

REPORT INFORMATION
  Report Type: Report from Study
  Country: CO (occurrence: CO)
  Receive Date: 20160324
  Receipt Date: 20160602
  Transmission Date: 20160815
  Serious: Yes (Hospitalization)
  Sender: FDA-Public Use
  Company Number: PHHY2016CO038390

PATIENT
  Sex: Female
  Weight: 60 kg

DRUGS (1)
  1. AFINITOR [Suspect]
     Active Substance: EVEROLIMUS
     Indication: BREAST CANCER
     Dosage: 10 MG, QD
     Route: 048
     Dates: start: 20151231

REACTIONS (9)
  - Thermal burn [Unknown]
  - Erythema [Unknown]
  - Pruritus generalised [Unknown]
  - Eye swelling [Unknown]
  - Pyrexia [Unknown]
  - Acarodermatitis [Unknown]
  - Insomnia [Unknown]
  - Chills [Unknown]
  - Hypersensitivity [Unknown]
